FAERS Safety Report 4478462-3 (Version None)
Quarter: 2004Q4

REPORT INFORMATION
  Report Type: 
  Country: None (occurrence: None)
  Receive Date: 20041013
  Receipt Date: 20041001
  Transmission Date: 20050328
  Serious: Yes (Death, Other)
  Sender: FDA-Public Use
  Company Number: 2004068097

PATIENT
  Age: 82 Year
  Sex: Male

DRUGS (8)
  1. AZITHROMYCIN [Suspect]
     Indication: PNEUMONIA
     Dosage: 1000 MG (250 MG, 4 IN 1 D), ORAL
     Route: 048
     Dates: start: 20040909, end: 20040913
  2. LORAZEPAM [Concomitant]
  3. SALBUTAMOL (SALBUTAMOL) [Concomitant]
  4. IPRATROPIUM BROMIDE [Concomitant]
  5. DIMENHYDRINATE DIMENHYDRINATE) [Concomitant]
  6. MORPHINE SULFATE [Concomitant]
  7. DIPHENYDRAMINE HYDROCHLORIDE (DIPHENHYDRAMINE HYDROCHLORIDE) [Concomitant]
  8. SERETIDE MITE (FLUTICASONE PROPIONATE, SALMETEROL XINAFOATE) [Concomitant]

REACTIONS (3)
  - ACCIDENTAL OVERDOSE [None]
  - MEDICATION ERROR [None]
  - METHICILLIN-RESISTANT STAPHYLOCOCCAL AUREUS TEST POSITIVE [None]
